FAERS Safety Report 11930932 (Version 1)
Quarter: 2016Q1

REPORT INFORMATION
  Report Type: Spontaneous
  Country: US (occurrence: US)
  Receive Date: 20160120
  Receipt Date: 20160120
  Transmission Date: 20160526
  Serious: No
  Sender: FDA-Public Use
  Company Number: US-INCYTE CORPORATION-2015IN004085

PATIENT
  Age: 68 Year
  Sex: Male

DRUGS (5)
  1. JAKAFI [Suspect]
     Active Substance: RUXOLITINIB
     Dosage: 20 MG, BID
     Route: 048
     Dates: start: 20150131
  2. MIRABEGRON [Concomitant]
     Active Substance: MIRABEGRON
  3. COREG [Concomitant]
     Active Substance: CARVEDILOL
  4. ZOCOR [Concomitant]
     Active Substance: SIMVASTATIN
  5. ASPIRIN. [Concomitant]
     Active Substance: ASPIRIN

REACTIONS (1)
  - Acne [Unknown]

NARRATIVE: CASE EVENT DATE: 20150814
